FAERS Safety Report 8904273 (Version 2)
Quarter: 2012Q4

REPORT INFORMATION
  Report Type: 
  Country: FR (occurrence: FR)
  Receive Date: 20121112
  Receipt Date: 20121206
  Transmission Date: 20130627
  Serious: Yes (Death)
  Sender: FDA-Public Use
  Company Number: FR-BAXTER-2012BAX022175

PATIENT
  Age: 72 Year
  Sex: Female

DRUGS (10)
  1. ENDOXAN 2000 MG, LYOPHILISAT POUR SOLUTION INJECTABLE [Suspect]
     Indication: BURKITT^S LYMPHOMA
     Route: 042
     Dates: start: 20120924, end: 20120924
  2. ENDOXAN 2000 MG, LYOPHILISAT POUR SOLUTION INJECTABLE [Suspect]
     Route: 042
     Dates: start: 20121008, end: 20121009
  3. MABTHERA [Suspect]
     Indication: BURKITT^S LYMPHOMA
     Route: 042
     Dates: start: 20121006, end: 20121006
  4. ELDISINE [Suspect]
     Indication: BURKITT^S LYMPHOMA
     Route: 042
     Dates: start: 20120924, end: 20120924
  5. VINCRISTINE [Suspect]
     Indication: BURKITT^S LYMPHOMA
     Route: 042
     Dates: start: 20121007, end: 20121007
  6. METHOTREXATE MERCK [Suspect]
     Indication: BURKITT^S LYMPHOMA
     Route: 037
     Dates: start: 20121008, end: 20121008
  7. ADRIBLASTINE [Suspect]
     Indication: BURKITT^S LYMPHOMA
     Route: 042
     Dates: start: 20121008, end: 20121008
  8. CORTANCYL [Concomitant]
     Indication: DRUG USE FOR UNKNOWN INDICATION
     Route: 048
     Dates: start: 20120924, end: 20120928
  9. CORTANCYL [Concomitant]
     Route: 048
     Dates: start: 20121008, end: 20121009
  10. METHYLPREDNISONE MYLAN [Concomitant]
     Indication: DRUG USE FOR UNKNOWN INDICATION
     Route: 037
     Dates: start: 20121008, end: 20121008

REACTIONS (4)
  - Cerebral haemorrhage [Fatal]
  - Bone marrow failure [Fatal]
  - Acinetobacter bacteraemia [Fatal]
  - Mycotic aneurysm [Unknown]
